FAERS Safety Report 26052487 (Version 1)
Quarter: 2025Q4

REPORT INFORMATION
  Report Type: Spontaneous
  Country: US (occurrence: US)
  Receive Date: 20251117
  Receipt Date: 20251117
  Transmission Date: 20260117
  Serious: No
  Sender: ALVOGEN
  Company Number: US-ALVOGEN-2025098030

PATIENT
  Sex: Female

DRUGS (4)
  1. TERIPARATIDE [Suspect]
     Active Substance: TERIPARATIDE
     Indication: Osteoporosis
     Dates: start: 202503
  2. TERIPARATIDE [Suspect]
     Active Substance: TERIPARATIDE
     Indication: Osteoporosis
     Dosage: EXPIRATION: UU-JUL-2026 ?CURRENT PEN
     Dates: start: 20250513
  3. OTEZLA [Concomitant]
     Active Substance: APREMILAST
     Indication: Psoriatic arthropathy
  4. XANAX [Concomitant]
     Active Substance: ALPRAZOLAM
     Indication: Product used for unknown indication

REACTIONS (6)
  - Device malfunction [Unknown]
  - Device issue [Unknown]
  - Device defective [Unknown]
  - Device leakage [Unknown]
  - Product dose omission issue [Unknown]
  - Wrong technique in product usage process [Unknown]

NARRATIVE: CASE EVENT DATE: 20250101
